FAERS Safety Report 8199337-2 (Version None)
Quarter: 2012Q1

REPORT INFORMATION
  Report Type: 
  Country: None (occurrence: None)
  Receive Date: 20120309
  Receipt Date: 20120306
  Transmission Date: 20120608
  Serious: Yes (Life-Threatening, Hospitalization)
  Sender: FDA-Public Use
  Company Number: GXKR2012DE001039

PATIENT

DRUGS (4)
  1. HYDROCHLOROTHIAZIDE W/RAMIPRIL [Concomitant]
     Dosage: UNK UKN, UNK
     Route: 048
     Dates: end: 20110615
  2. VENLAFAXINE HCL [Suspect]
     Dosage: 225 MG, UNK
     Route: 048
     Dates: start: 20110607, end: 20110615
  3. AMLODIPINE [Concomitant]
     Dosage: 5 MG, UNK
     Route: 048
     Dates: end: 20110615
  4. METFORMIN HYDROCHLORIDE [Suspect]
     Dosage: 1000 MG, UNK
     Route: 048
     Dates: start: 20110401, end: 20110615

REACTIONS (9)
  - ALTERED STATE OF CONSCIOUSNESS [None]
  - VOMITING [None]
  - BALANCE DISORDER [None]
  - HYPOKALAEMIA [None]
  - DIARRHOEA [None]
  - NAUSEA [None]
  - DYSARTHRIA [None]
  - HYPONATRAEMIA [None]
  - INAPPROPRIATE ANTIDIURETIC HORMONE SECRETION [None]
